FAERS Safety Report 8558166-8 (Version None)
Quarter: 2012Q2

REPORT INFORMATION
  Report Type: 
  Country: None (occurrence: None)
  Receive Date: 20120418
  Receipt Date: 20080811
  Transmission Date: 20120825
  Serious: Yes (Other)
  Sender: FDA-Public Use
  Company Number: PHEH2008US06806

PATIENT
  Age: 54 Year

DRUGS (4)
  1. DIOVAN HCT [Suspect]
     Dates: start: 20080604
  2. LIPITOR [Concomitant]
  3. ASPIRIN [Concomitant]
  4. ACIPHEX [Concomitant]

REACTIONS (4)
  - ANGIOEDEMA [None]
  - DYSPHAGIA [None]
  - LIP SWELLING [None]
  - SWELLING FACE [None]
